FAERS Safety Report 7064582-6 (Version None)
Quarter: 2010Q4

REPORT INFORMATION
  Report Type: 
  Country: None (occurrence: None)
  Receive Date: 20101019
  Receipt Date: 20101006
  Transmission Date: 20110411
  Serious: Yes (Other)
  Sender: FDA-Public Use
  Company Number: BR-1183541

PATIENT
  Age: 16 Year
  Sex: Female

DRUGS (1)
  1. TEARS NATURALE FORTE(TEARS NATURALE FORTE) OPHTHALMIC SOLUTION EYE DRO [Suspect]
     Dosage: OPHTHALMIC
     Route: 047

REACTIONS (8)
  - CONJUNCTIVAL DISORDER [None]
  - CONJUNCTIVAL HAEMORRHAGE [None]
  - CORNEAL EPITHELIUM DEFECT [None]
  - EYE DISCHARGE [None]
  - EYE IRRITATION [None]
  - EYE PAIN [None]
  - OCULAR HYPERAEMIA [None]
  - SKIN LACERATION [None]
